FAERS Safety Report 19918631 (Version 1)
Quarter: 2021Q4

REPORT INFORMATION
  Report Type: Spontaneous
  Country: US (occurrence: US)
  Receive Date: 20211004
  Receipt Date: 20211004
  Transmission Date: 20220303
  Serious: Yes (Death, Other)
  Sender: FDA-Public Use
  Company Number: US-SA-2021SA326135

PATIENT
  Age: 76 Year
  Sex: Male

DRUGS (3)
  1. MULTAQ [Suspect]
     Active Substance: DRONEDARONE
     Indication: Atrial fibrillation
     Dosage: 400 MG, BID
     Dates: start: 2015, end: 20180411
  2. ROSUVASTATIN [Concomitant]
     Active Substance: ROSUVASTATIN
     Dosage: 20 MG
  3. ASPIRIN [Concomitant]
     Active Substance: ASPIRIN
     Dosage: 81 MG

REACTIONS (26)
  - Acute respiratory failure [Fatal]
  - Agonal respiration [Fatal]
  - Apnoea [Fatal]
  - Acute left ventricular failure [Unknown]
  - Hypothyroidism [Unknown]
  - Pulmonary hypertension [Unknown]
  - Acute kidney injury [Unknown]
  - Pulmonary oedema [Unknown]
  - Autoimmune thyroiditis [Unknown]
  - Interstitial lung disease [Unknown]
  - Pulmonary valve incompetence [Unknown]
  - Cardiac failure congestive [Unknown]
  - Tricuspid valve disease [Unknown]
  - Thyroid mass [Unknown]
  - Chronic obstructive pulmonary disease [Unknown]
  - Iron deficiency anaemia [Unknown]
  - Presyncope [Unknown]
  - Orthopnoea [Unknown]
  - Asthenia [Unknown]
  - Lethargy [Unknown]
  - Dyspnoea [Unknown]
  - Cardiomegaly [Unknown]
  - Dizziness [Unknown]
  - Hepatic enzyme increased [Unknown]
  - Cough [Unknown]
  - Sinus bradycardia [Unknown]
